FAERS Safety Report 16514806 (Version 3)
Quarter: 2019Q3

REPORT INFORMATION
  Report Type: Spontaneous
  Country: CN (occurrence: CN)
  Receive Date: 20190702
  Receipt Date: 20190821
  Transmission Date: 20191004
  Serious: Yes (Other)
  Sender: FDA-Public Use
  Company Number: CN-UCBSA-2019026935

PATIENT
  Age: 3 Year
  Sex: Male
  Weight: 18.5 kg

DRUGS (3)
  1. OXCARBAZEPINE. [Concomitant]
     Active Substance: OXCARBAZEPINE
  2. KEPPRA [Suspect]
     Active Substance: LEVETIRACETAM
     Indication: SEIZURE
  3. KEPPRA [Suspect]
     Active Substance: LEVETIRACETAM
     Indication: EPILEPSY
     Dosage: 4.5 MILLILITER, 2X/DAY (BID)
     Route: 048
     Dates: start: 2018

REACTIONS (2)
  - Seizure [Unknown]
  - Product quality issue [Unknown]

NARRATIVE: CASE EVENT DATE: 20190618
